FAERS Safety Report 4638149-0 (Version None)
Quarter: 2005Q2

REPORT INFORMATION
  Report Type: 
  Country: None (occurrence: None)
  Receive Date: 20050415
  Receipt Date: 20050324
  Transmission Date: 20051028
  Serious: Yes (Other)
  Sender: FDA-Public Use
  Company Number: US_0503114400

PATIENT
  Age: 45 Year
  Sex: Male

DRUGS (1)
  1. FORTEO [Suspect]
     Dates: start: 20040101

REACTIONS (6)
  - BLOOD FOLATE DECREASED [None]
  - CONVULSION [None]
  - COORDINATION ABNORMAL [None]
  - ELECTROENCEPHALOGRAM ABNORMAL [None]
  - GAIT DISTURBANCE [None]
  - ORAL INTAKE REDUCED [None]
